FAERS Safety Report 8748588 (Version 2)
Quarter: 2012Q4

REPORT INFORMATION
  Report Type: 
  Country: IE (occurrence: IE)
  Receive Date: 20120827
  Receipt Date: 20121004
  Transmission Date: 20130627
  Serious: Yes (Other)
  Sender: FDA-Public Use
  Company Number: IE-ROCHE-1106782

PATIENT
  Age: 67 Year
  Sex: Male
  Weight: 72 kg

DRUGS (52)
  1. NAPROSYN [Suspect]
     Indication: RHEUMATOID ARTHRITIS
     Route: 065
     Dates: start: 20070515, end: 20120815
  2. LYRICA [Concomitant]
  3. PREDNISOLONE [Concomitant]
     Route: 065
     Dates: start: 20120925
  4. PREDNISOLONE [Concomitant]
     Route: 065
  5. PREDNISOLONE [Concomitant]
     Route: 065
     Dates: start: 20081124
  6. PREDNISOLONE [Concomitant]
     Route: 065
     Dates: start: 20081203
  7. PREDNISOLONE [Concomitant]
     Route: 065
     Dates: start: 20081203
  8. PREDNISOLONE [Concomitant]
     Route: 065
     Dates: start: 20100622
  9. PREDNISOLONE [Concomitant]
     Route: 065
     Dates: start: 20100806
  10. PREDNISOLONE [Concomitant]
     Route: 065
     Dates: start: 20110329
  11. PREDNISOLONE [Concomitant]
     Route: 065
     Dates: start: 20111017
  12. PREDNISOLONE [Concomitant]
     Route: 065
     Dates: start: 20110424
  13. PREDNISOLONE [Concomitant]
     Route: 065
     Dates: start: 20120828
  14. PREDNISOLONE [Concomitant]
     Route: 065
     Dates: start: 20120910
  15. PREDNISOLONE [Concomitant]
     Route: 065
     Dates: start: 20120910
  16. PREDNISOLONE [Concomitant]
     Dosage: 1 TO BE TAKEN 3 TIMES IN DAY THAN 1 TO BE TAKEN 2 TIMES A DAY
     Route: 065
     Dates: start: 20120828
  17. PREDNISOLONE [Concomitant]
     Dosage: 1 TO BE TAKEN 3 TIMES IN DAY THAN 1 TO BE TAKEN 2 TIMES A DAY
     Route: 065
     Dates: start: 20120910
  18. PREDNISOLONE [Concomitant]
     Route: 065
     Dates: start: 20120925
  19. OMEPRAZOL [Concomitant]
     Route: 065
     Dates: start: 20120925
  20. OMEPRAZOL [Concomitant]
     Route: 065
     Dates: start: 20100614
  21. OMEPRAZOL [Concomitant]
     Route: 065
     Dates: start: 20100706
  22. OMEPRAZOL [Concomitant]
     Route: 065
     Dates: start: 20101001
  23. OMEPRAZOL [Concomitant]
     Route: 065
     Dates: start: 20110329
  24. OMEPRAZOL [Concomitant]
     Route: 065
     Dates: start: 20111017
  25. OMEPRAZOL [Concomitant]
     Route: 065
     Dates: start: 20120424
  26. OMEPRAZOL [Concomitant]
     Route: 065
     Dates: start: 20120828
  27. OMEPRAZOL [Concomitant]
     Route: 065
     Dates: start: 20120925
  28. CALCICHEW D3 FORTE [Concomitant]
     Route: 065
     Dates: start: 20120925
  29. CALCICHEW D3 FORTE [Concomitant]
     Route: 065
  30. CALCICHEW D3 FORTE [Concomitant]
     Route: 065
     Dates: start: 20081203
  31. CALCICHEW D3 FORTE [Concomitant]
     Route: 065
     Dates: start: 20081124
  32. CALCICHEW D3 FORTE [Concomitant]
     Route: 065
     Dates: start: 20100622
  33. CALCICHEW D3 FORTE [Concomitant]
     Route: 065
     Dates: start: 20110329
  34. CALCICHEW D3 FORTE [Concomitant]
     Route: 065
     Dates: start: 20111017
  35. CALCICHEW D3 FORTE [Concomitant]
     Route: 065
     Dates: start: 20120424
  36. CALCICHEW D3 FORTE [Concomitant]
     Route: 065
     Dates: start: 20120925
  37. QUININE [Concomitant]
     Route: 065
     Dates: start: 20120925
  38. QUININE [Concomitant]
     Route: 065
     Dates: start: 20081124
  39. QUININE [Concomitant]
     Route: 065
     Dates: start: 20100622
  40. QUININE [Concomitant]
     Route: 065
     Dates: start: 20111018
  41. QUININE [Concomitant]
     Route: 065
     Dates: start: 20111206
  42. QUININE [Concomitant]
     Route: 065
     Dates: start: 20120424
  43. QUININE [Concomitant]
     Route: 065
  44. QUININE [Concomitant]
     Route: 065
     Dates: start: 20110628
  45. QUININE [Concomitant]
     Route: 065
     Dates: start: 20120925
  46. NAPROSYN [Concomitant]
     Route: 065
     Dates: start: 20111018
  47. NAPROSYN [Concomitant]
     Route: 065
     Dates: start: 20081124
  48. NAPROSYN [Concomitant]
     Route: 065
     Dates: start: 20100622
  49. NAPROSYN [Concomitant]
     Route: 065
     Dates: start: 20110329
  50. NAPROSYN [Concomitant]
     Route: 065
     Dates: start: 20111017
  51. NAPROSYN [Concomitant]
     Route: 065
     Dates: start: 20120424
  52. NAPROSYN [Concomitant]
     Route: 065
     Dates: start: 20120925

REACTIONS (1)
  - Renal impairment [Recovered/Resolved]
